FAERS Safety Report 9387538 (Version 3)
Quarter: 2014Q1

REPORT INFORMATION
  Report Type: Spontaneous
  Country: US (occurrence: US)
  Receive Date: 20130708
  Receipt Date: 20140313
  Transmission Date: 20141002
  Serious: Yes (Disabling, Other)
  Sender: FDA-Public Use
  Company Number: US-PFIZER INC-2013198389

PATIENT
  Age: 60 Year
  Sex: Female
  Weight: 72.56 kg

DRUGS (3)
  1. LYRICA [Suspect]
     Indication: FIBROMYALGIA
     Dosage: 150 MG, 3X/DAY
     Route: 048
  2. NEURONTIN [Suspect]
     Dosage: UNK
  3. LORTAB [Concomitant]
     Dosage: 500 MG, 3X/DAY

REACTIONS (9)
  - Systemic lupus erythematosus [Unknown]
  - Diabetes mellitus [Unknown]
  - Neuropathy peripheral [Unknown]
  - Drug ineffective [Unknown]
  - Hearing impaired [Unknown]
  - Pain [Unknown]
  - Contusion [Unknown]
  - Back pain [Unknown]
  - Drug ineffective [Unknown]
